FAERS Safety Report 6258111-4 (Version None)
Quarter: 2009Q3

REPORT INFORMATION
  Report Type: 
  Country: None (occurrence: None)
  Receive Date: 20090707
  Receipt Date: 20090630
  Transmission Date: 20100115
  Serious: Yes (Other)
  Sender: FDA-Public Use
  Company Number: US-B.I. PHARMACEUTICALS,INC./RIDGEFIELD-2009-BP-07924PF

PATIENT
  Age: 62 Year
  Sex: Male
  Weight: 67.13 kg

DRUGS (6)
  1. SPIRIVA [Suspect]
     Indication: ASTHMA
     Dosage: 18 MCG
     Route: 055
  2. SPIRIVA [Suspect]
     Indication: EMPHYSEMA
  3. ALBUTEROL [Concomitant]
     Route: 048
  4. FLUTICASONE PROPIONATE AND SALMETEROL [Concomitant]
     Route: 048
  5. ASPIRIN [Concomitant]
     Route: 048
  6. FLUTICASONE FUROATE [Concomitant]
     Indication: HYPERSENSITIVITY
     Route: 048

REACTIONS (4)
  - COLLAPSE OF LUNG [None]
  - DYSPNOEA [None]
  - PNEUMONIA [None]
  - PNEUMOTHORAX [None]
